FAERS Safety Report 5076272-X (Version None)
Quarter: 2006Q3

REPORT INFORMATION
  Report Type: 
  Country: None (occurrence: None)
  Receive Date: 20060804
  Receipt Date: 20060803
  Transmission Date: 20061208
  Serious: Yes (Hospitalization)
  Sender: FDA-Public Use
  Company Number: 222392

PATIENT
  Age: 85 Year
  Sex: Male

DRUGS (2)
  1. MABTHERA                      (RITUXIMAB) [Suspect]
     Indication: B-CELL LYMPHOMA
     Dates: end: 20050901
  2. CHEMOTHERAPY TREATMENTS NOS (ANTINEOPLASTIC AGENT NOS) [Suspect]
     Indication: B-CELL LYMPHOMA

REACTIONS (1)
  - INTRA-ABDOMINAL HAEMORRHAGE [None]
